FAERS Safety Report 10528061 (Version 1)
Quarter: 2014Q4

REPORT INFORMATION
  Report Type: Spontaneous
  Country: ES (occurrence: None)
  Receive Date: 20141016
  Receipt Date: 20141016
  Transmission Date: 20150528
  Serious: Yes (Hospitalization)
  Sender: FDA-Public Use
  Company Number: FK201404046

PATIENT
  Age: 60 Year
  Sex: Female

DRUGS (2)
  1. CYTARABINE (MANUFACTURER UNKNOWN) (CYTARABINE) (CYTARABINE) [Suspect]
     Active Substance: CYTARABINE
     Indication: ACUTE MYELOID LEUKAEMIA RECURRENT
  2. AMSACRINE [Suspect]
     Active Substance: AMSACRINE
     Indication: ACUTE MYELOID LEUKAEMIA RECURRENT

REACTIONS (8)
  - Mucosal inflammation [None]
  - Neurotoxicity [None]
  - Geotrichum infection [None]
  - Colitis [None]
  - Neutropenia [None]
  - Malignant neoplasm progression [None]
  - Acute myeloid leukaemia [None]
  - Staphylococcal infection [None]
